FAERS Safety Report 12859833 (Version 1)
Quarter: 2016Q4

REPORT INFORMATION
  Report Type: Report from Study
  Country: IN (occurrence: IN)
  Receive Date: 20161018
  Receipt Date: 20161018
  Transmission Date: 20170207
  Serious: Yes (Death)
  Sender: FDA-Public Use
  Company Number: PHHY2016IN143153

PATIENT
  Age: 62 Year
  Sex: Female
  Weight: 68 kg

DRUGS (8)
  1. QUETIAPINE. [Concomitant]
     Active Substance: QUETIAPINE
     Indication: DEMENTIA
     Dosage: 25 MG, UNK
     Route: 048
     Dates: start: 201604
  2. ZAPIZ [Concomitant]
     Indication: DEMENTIA
     Dosage: 0.5 MG, UNK
     Route: 048
  3. ASPIRIN. [Concomitant]
     Active Substance: ASPIRIN
     Indication: PRODUCT USED FOR UNKNOWN INDICATION
     Dosage: 150 MG, UNK
     Route: 048
  4. EXELON PATCH [Suspect]
     Active Substance: RIVASTIGMINE
     Dosage: 10 MM, UNK
     Route: 062
  5. ADMENTA [Concomitant]
     Indication: DEMENTIA
     Dosage: 10 MG, UNK
     Route: 048
     Dates: start: 201608
  6. EXELON PATCH [Suspect]
     Active Substance: RIVASTIGMINE
     Indication: DEMENTIA ALZHEIMER^S TYPE
     Dosage: 5 MM, UNK
     Route: 062
     Dates: end: 201603
  7. K-GLIM-M [Concomitant]
     Indication: DIABETES MELLITUS
     Dosage: UNK
     Route: 048
  8. METOZAAR [Concomitant]
     Indication: PRODUCT USED FOR UNKNOWN INDICATION
     Dosage: 50 L, UNK
     Route: 048

REACTIONS (5)
  - Blood glucose increased [Unknown]
  - Hypokinesia [Fatal]
  - Decreased activity [Recovering/Resolving]
  - Blood cholesterol increased [Unknown]
  - Drug ineffective [Not Recovered/Not Resolved]

NARRATIVE: CASE EVENT DATE: 201603
